FAERS Safety Report 26060989 (Version 1)
Quarter: 2025Q4

REPORT INFORMATION
  Report Type: Spontaneous
  Country: EU (occurrence: EU)
  Receive Date: 20251118
  Receipt Date: 20251118
  Transmission Date: 20260117
  Serious: Yes (Hospitalization, Other)
  Sender: NOVARTIS
  Company Number: EU-002147023-NVSC2025LT175430

PATIENT
  Age: 43 Year
  Sex: Male

DRUGS (3)
  1. CYCLOSPORINE [Suspect]
     Active Substance: CYCLOSPORINE
     Indication: Chronic graft versus host disease
     Dosage: UNK
     Route: 065
  2. RUXOLITINIB [Concomitant]
     Active Substance: RUXOLITINIB
     Indication: Chronic graft versus host disease
     Dosage: 5 MG, BID
     Route: 065
  3. METHYLPREDNISOLONE [Concomitant]
     Active Substance: METHYLPREDNISOLONE
     Indication: Chronic graft versus host disease
     Dosage: UNK
     Route: 065

REACTIONS (16)
  - Thrombocytopenia [Recovering/Resolving]
  - Dry mouth [Unknown]
  - Oesophagitis [Unknown]
  - Hyperbilirubinaemia [Unknown]
  - Diarrhoea [Unknown]
  - Pyrexia [Unknown]
  - Haematuria [Recovering/Resolving]
  - Dry eye [Unknown]
  - Ulcerative keratitis [Not Recovered/Not Resolved]
  - Iridocyclitis [Not Recovered/Not Resolved]
  - Endophthalmitis [Not Recovered/Not Resolved]
  - Rash [Unknown]
  - Nausea [Recovered/Resolved]
  - Decreased appetite [Unknown]
  - Dysuria [Recovering/Resolving]
  - Weight decreased [Unknown]
